FAERS Safety Report 7892191-5 (Version None)
Quarter: 2011Q4

REPORT INFORMATION
  Report Type: 
  Country: None (occurrence: None)
  Receive Date: 20111104
  Receipt Date: 20111025
  Transmission Date: 20120403
  Serious: Yes (Other)
  Sender: FDA-Public Use
  Company Number: US-ASTRAZENECA-2011SE64672

PATIENT
  Age: 61 Year
  Sex: Female
  Weight: 77.1 kg

DRUGS (3)
  1. SIMVASTATIN [Concomitant]
     Indication: BLOOD CHOLESTEROL ABNORMAL
  2. NEXIUM [Suspect]
     Indication: OESOPHAGEAL ULCER
     Route: 048
     Dates: start: 20030101
  3. TRAMADOL HCL [Concomitant]
     Indication: FIBROMYALGIA

REACTIONS (4)
  - DEPRESSION [None]
  - FRACTURE [None]
  - OSTEOARTHRITIS [None]
  - HAND DEFORMITY [None]
